FAERS Safety Report 24596000 (Version 5)
Quarter: 2025Q1

REPORT INFORMATION
  Report Type: Spontaneous
  Country: US (occurrence: US)
  Receive Date: 20241109
  Receipt Date: 20250117
  Transmission Date: 20250409
  Serious: Yes (Life-Threatening, Hospitalization, Other)
  Sender: NOVARTIS
  Company Number: US-002147023-NVSC2024US216712

PATIENT
  Age: 4 Decade
  Sex: Female

DRUGS (9)
  1. KESIMPTA [Interacting]
     Active Substance: OFATUMUMAB
     Indication: Relapsing-remitting multiple sclerosis
     Route: 065
  2. KESIMPTA [Interacting]
     Active Substance: OFATUMUMAB
     Route: 065
  3. AMPHETAMINE [Interacting]
     Active Substance: AMPHETAMINE
     Indication: Product used for unknown indication
     Dosage: 10 MG, QD
     Route: 065
     Dates: start: 202304
  4. ASCORBIC ACID [Concomitant]
     Active Substance: ASCORBIC ACID
     Indication: Product used for unknown indication
     Dosage: 500 MG, QD
     Route: 065
     Dates: start: 202210
  5. ERGOCALCIFEROL [Concomitant]
     Active Substance: ERGOCALCIFEROL
     Indication: Product used for unknown indication
     Dosage: 1.25 MG, QW
     Route: 065
     Dates: start: 202209
  6. LABETALOL [Concomitant]
     Active Substance: LABETALOL
     Indication: Hypertension
     Route: 065
     Dates: start: 201803
  7. COLLAGEN [Concomitant]
     Active Substance: COLLAGEN
     Indication: Product used for unknown indication
     Dosage: QD (1 SCOOPFUL INTO A BEVERAGE)
     Route: 065
     Dates: start: 202210
  8. ASPIRIN [Concomitant]
     Active Substance: ASPIRIN
     Indication: Product used for unknown indication
     Route: 065
  9. HEPARIN [Concomitant]
     Active Substance: HEPARIN SODIUM
     Indication: Product used for unknown indication
     Route: 042

REACTIONS (11)
  - Coronary artery dissection [Unknown]
  - Dyspnoea [Unknown]
  - Angina pectoris [Unknown]
  - Nausea [Unknown]
  - Cardiac arrest [Unknown]
  - Drug interaction [Unknown]
  - Ventricular tachycardia [Unknown]
  - Heart failure with preserved ejection fraction [Unknown]
  - Cardiac disorder [Unknown]
  - Headache [Unknown]
  - Herpes zoster [Unknown]
